FAERS Safety Report 7169985-7 (Version None)
Quarter: 2010Q4

REPORT INFORMATION
  Report Type: 
  Country: None (occurrence: None)
  Receive Date: 20101206
  Receipt Date: 20101118
  Transmission Date: 20110411
  Serious: Yes (Death)
  Sender: FDA-Public Use
  Company Number: 1000017486

PATIENT

DRUGS (1)
  1. ESCITALOPRAM OXALATE [Suspect]

REACTIONS (1)
  - DEATH [None]
